FAERS Safety Report 4960758-X (Version None)
Quarter: 2006Q2

REPORT INFORMATION
  Report Type: 
  Country: None (occurrence: None)
  Receive Date: 20060403
  Receipt Date: 20051202
  Transmission Date: 20061013
  Serious: Yes (Hospitalization, Disabling)
  Sender: FDA-Public Use
  Company Number: US-MERCK-0512USA00445

PATIENT
  Age: 51 Year
  Sex: Male
  Weight: 114 kg

DRUGS (2)
  1. VIOXX [Suspect]
     Indication: ROAD TRAFFIC ACCIDENT
     Route: 048
     Dates: start: 20030117, end: 20041122
  2. VIOXX [Suspect]
     Indication: SHOULDER PAIN
     Route: 048
     Dates: start: 20030117, end: 20041122

REACTIONS (4)
  - CHEST PAIN [None]
  - DEPRESSION [None]
  - MYOCARDIAL INFARCTION [None]
  - PNEUMONIA [None]
